FAERS Safety Report 9464868 (Version 2)
Quarter: 2013Q4

REPORT INFORMATION
  Report Type: Spontaneous
  Country: GB (occurrence: GB)
  Receive Date: 20130819
  Receipt Date: 20131211
  Transmission Date: 20140711
  Serious: Yes (Other)
  Sender: FDA-Public Use
  Company Number: PHHY2013GB087605

PATIENT
  Age: 78 Year
  Sex: Female

DRUGS (4)
  1. AMLODIPINE [Suspect]
     Indication: PRODUCT USED FOR UNKNOWN INDICATION
     Dosage: 10 MG
  2. AMLODIPINE [Suspect]
     Dosage: 10 MG, UNK
     Dates: start: 201307, end: 201307
  3. METFORMIN [Concomitant]
  4. GLICLAZIDE [Concomitant]

REACTIONS (3)
  - Nightmare [Unknown]
  - Rash [Not Recovered/Not Resolved]
  - Joint swelling [Unknown]
